FAERS Safety Report 14337874 (Version 1)
Quarter: 2017Q4

REPORT INFORMATION
  Report Type: Spontaneous
  Country: US (occurrence: US)
  Receive Date: 20171229
  Receipt Date: 20171229
  Transmission Date: 20180321
  Serious: No
  Sender: FDA-Public Use
  Company Number: US-SHIRE-US201733128

PATIENT

DRUGS (2)
  1. HUMIRA [Concomitant]
     Active Substance: ADALIMUMAB
  2. PENTASA [Suspect]
     Active Substance: MESALAMINE
     Indication: COLITIS ULCERATIVE
     Dosage: 500 MG, OTHER, 2 CAPSULES 4 TIMES DAILY
     Dates: start: 201703

REACTIONS (4)
  - Peripheral swelling [Unknown]
  - Rash [Unknown]
  - Inability to afford medication [Unknown]
  - Skin exfoliation [Unknown]
